FAERS Safety Report 19499328 (Version 2)
Quarter: 2021Q4

REPORT INFORMATION
  Report Type: Spontaneous
  Country: FR (occurrence: FR)
  Receive Date: 20210706
  Receipt Date: 20211007
  Transmission Date: 20220303
  Serious: Yes (Life-Threatening, Hospitalization, Other)
  Sender: FDA-Public Use
  Company Number: FR-BRISTOL-MYERS SQUIBB COMPANY-BMS-2021-065519

PATIENT
  Sex: Male

DRUGS (2)
  1. NIVOLUMAB [Suspect]
     Active Substance: NIVOLUMAB
     Indication: Renal cell carcinoma
     Dosage: 1ST LINE, 2 COURSES
     Route: 065
  2. IPILIMUMAB [Suspect]
     Active Substance: IPILIMUMAB
     Indication: Renal cell carcinoma
     Dosage: 1ST LINE, 2 COURSES
     Route: 065

REACTIONS (7)
  - Respiratory failure [Unknown]
  - Metastases to lung [Unknown]
  - Renal failure [Unknown]
  - Lumbar vertebral fracture [Unknown]
  - Skin reaction [Unknown]
  - Lung disorder [Unknown]
  - Diarrhoea [Unknown]
